FAERS Safety Report 15626028 (Version 2)
Quarter: 2018Q4

REPORT INFORMATION
  Report Type: Spontaneous
  Country: PL (occurrence: PL)
  Receive Date: 20181116
  Receipt Date: 20181121
  Transmission Date: 20190205
  Serious: Yes (Hospitalization, Other)
  Sender: FDA-Public Use
  Company Number: PL-VELOXIS PHARMACEUTICALS, INC.-2018VELPL1247

PATIENT

DRUGS (7)
  1. CICLOSPORIN [Suspect]
     Active Substance: CYCLOSPORINE
     Indication: IMMUNOSUPPRESSANT DRUG THERAPY
     Dosage: UNK
     Route: 065
  2. ENVARSUS XR [Suspect]
     Active Substance: TACROLIMUS
     Indication: CHRONIC GRAFT VERSUS HOST DISEASE
  3. MYCOPHENOLATE [Suspect]
     Active Substance: MYCOPHENOLIC ACID
     Indication: CHRONIC GRAFT VERSUS HOST DISEASE
  4. MYCOPHENOLATE [Suspect]
     Active Substance: MYCOPHENOLIC ACID
     Indication: IMMUNOSUPPRESSANT DRUG THERAPY
     Dosage: UNK
     Route: 065
  5. AZACITIDINE. [Concomitant]
     Active Substance: AZACITIDINE
     Indication: PROSTATIC DISORDER
     Dosage: UNK
     Dates: start: 20150316
  6. ENVARSUS XR [Suspect]
     Active Substance: TACROLIMUS
     Indication: IMMUNOSUPPRESSANT DRUG THERAPY
     Dosage: UNK
     Route: 065
  7. CICLOSPORIN [Suspect]
     Active Substance: CYCLOSPORINE
     Indication: CHRONIC GRAFT VERSUS HOST DISEASE

REACTIONS (9)
  - Bronchopulmonary aspergillosis [Unknown]
  - Disease progression [Unknown]
  - Thrombotic microangiopathy [Unknown]
  - Erysipelas [Unknown]
  - Intentional product use issue [Unknown]
  - Chronic graft versus host disease in skin [Unknown]
  - Acute respiratory failure [Unknown]
  - Drug resistance [Unknown]
  - Infection [Unknown]

NARRATIVE: CASE EVENT DATE: 201606
